FAERS Safety Report 4593826-5 (Version None)
Quarter: 2005Q1

REPORT INFORMATION
  Report Type: 
  Country: None (occurrence: None)
  Receive Date: 20050301
  Receipt Date: 20050217
  Transmission Date: 20050727
  Serious: Yes (Death, Life-Threatening, Hospitalization)
  Sender: FDA-Public Use
  Company Number: SA-JNJFOC-20041100215

PATIENT
  Sex: Male

DRUGS (2)
  1. CAELYX [Suspect]
     Route: 042
  2. SODIUM BICARBONATE [Concomitant]
     Indication: PROPHYLAXIS
     Route: 049

REACTIONS (7)
  - CHEST PAIN [None]
  - CONSTIPATION [None]
  - INTESTINAL OBSTRUCTION [None]
  - MUCOSAL INFLAMMATION [None]
  - OVERDOSE [None]
  - RENAL FAILURE ACUTE [None]
  - SEPTIC SHOCK [None]
